FAERS Safety Report 13824113 (Version 2)
Quarter: 2017Q3

REPORT INFORMATION
  Report Type: Report from Study
  Country: US (occurrence: US)
  Receive Date: 20170802
  Receipt Date: 20170803
  Transmission Date: 20171127
  Serious: Yes (Other)
  Sender: FDA-Public Use
  Company Number: US-UCBSA-2017028029

PATIENT
  Sex: Female

DRUGS (3)
  1. LEVETIRACETAM. [Suspect]
     Active Substance: LEVETIRACETAM
     Indication: PRODUCT USED FOR UNKNOWN INDICATION
     Dosage: UNK
  2. LEVETIRACETAM. [Suspect]
     Active Substance: LEVETIRACETAM
     Dosage: DOSE DECREASED
  3. PROTONIX [Concomitant]
     Active Substance: PANTOPRAZOLE SODIUM
     Indication: GALLBLADDER DISORDER

REACTIONS (8)
  - Anger [Unknown]
  - Hand fracture [Unknown]
  - Stress [Unknown]
  - Substance use [Unknown]
  - Intentional product misuse [Unknown]
  - Gallbladder disorder [Unknown]
  - Major depression [Unknown]
  - Seizure [Unknown]
